FAERS Safety Report 17071509 (Version 1)
Quarter: 2019Q4

REPORT INFORMATION
  Report Type: Spontaneous
  Country: IT (occurrence: IT)
  Receive Date: 20191125
  Receipt Date: 20191125
  Transmission Date: 20200122
  Serious: Yes (Other)
  Sender: FDA-Public Use
  Company Number: IT-SUN PHARMACEUTICAL INDUSTRIES LTD-2019RR-228606

PATIENT
  Age: 55 Year
  Sex: Female

DRUGS (5)
  1. 5-FLUOROURACIL [Suspect]
     Active Substance: FLUOROURACIL
     Dosage: 2400 MILLIGRAM/SQ. METER
     Route: 042
  2. 5-FLUOROURACIL [Suspect]
     Active Substance: FLUOROURACIL
     Indication: COLORECTAL CANCER METASTATIC
     Dosage: 400 MILLIGRAM/SQ. METER
     Route: 040
  3. OXALIPLATIN. [Suspect]
     Active Substance: OXALIPLATIN
     Indication: COLORECTAL CANCER METASTATIC
     Dosage: 85 MILLIGRAM/SQ. METER
     Route: 042
  4. BEVACIZUMAB. [Suspect]
     Active Substance: BEVACIZUMAB
     Indication: COLORECTAL CANCER METASTATIC
     Route: 065
  5. CALCIUM FOLINAT [Suspect]
     Active Substance: LEUCOVORIN CALCIUM
     Indication: COLORECTAL CANCER METASTATIC
     Dosage: 400 MILLIGRAM/SQ. METER
     Route: 042

REACTIONS (3)
  - Therapy partial responder [Unknown]
  - Thrombosis [Unknown]
  - Atypical haemolytic uraemic syndrome [Unknown]
